FAERS Safety Report 7418954 (Version 2)
Quarter: 2013Q2

REPORT INFORMATION
  Report Type: Report from Study
  Country: FR (occurrence: FR)
  Receive Date: 20100614
  Receipt Date: 20130610
  Transmission Date: 20140414
  Serious: Yes (Death, Other)
  Sender: FDA-Public Use
  Company Number: PHHY2010FR37593

PATIENT
  Age: 45 Year
  Sex: Male
  Weight: 84 kg

DRUGS (1)
  1. STI571 [Suspect]
     Indication: CHRONIC MYELOID LEUKAEMIA
     Dosage: UNK UKN, UNK

REACTIONS (23)
  - Multi-organ failure [Fatal]
  - Acute respiratory distress syndrome [Fatal]
  - Respiratory distress [Fatal]
  - Renal disorder [Fatal]
  - Liver disorder [Fatal]
  - Jaundice [Fatal]
  - Ischaemic hepatitis [Fatal]
  - Renal failure [Fatal]
  - Inflammation [Fatal]
  - Procalcitonin increased [Fatal]
  - Abdominal distension [Fatal]
  - Diarrhoea [Fatal]
  - Haemodynamic instability [Fatal]
  - Hypotension [Fatal]
  - Septic shock [Fatal]
  - Colitis ischaemic [Fatal]
  - Colitis [Fatal]
  - Systemic candida [Fatal]
  - Norepinephrine increased [Unknown]
  - Bone marrow failure [Unknown]
  - Haemoglobin decreased [Unknown]
  - Thrombocytopenia [Unknown]
  - Somnolence [Unknown]
